FAERS Safety Report 4459739-4 (Version None)
Quarter: 2004Q3

REPORT INFORMATION
  Report Type: 
  Country: None (occurrence: None)
  Receive Date: 20040928
  Receipt Date: 20040819
  Transmission Date: 20050211
  Serious: Yes (Other)
  Sender: FDA-Public Use
  Company Number: PHEH2004US09017

PATIENT
  Age: 74 Year
  Sex: Male

DRUGS (3)
  1. LAMISIL [Suspect]
     Indication: NAIL TINEA
     Dosage: 250 MG, QD
     Route: 048
     Dates: start: 20030616, end: 20030901
  2. ZOCOR [Concomitant]
  3. VIAGRA [Concomitant]

REACTIONS (4)
  - CHALAZION [None]
  - VISION BLURRED [None]
  - VISUAL ACUITY REDUCED [None]
  - VITREOUS FLOATERS [None]
